FAERS Safety Report 15062429 (Version 1)
Quarter: 2018Q2

REPORT INFORMATION
  Report Type: Spontaneous
  Country: US (occurrence: US)
  Receive Date: 20180625
  Receipt Date: 20180625
  Transmission Date: 20180711
  Serious: No
  Sender: FDA-Public Use
  Company Number: US-AMGEN-USASP2011046898

PATIENT

DRUGS (2)
  1. CALCIUM                            /00060701/ [Concomitant]
     Active Substance: CALCIUM
     Dosage: 2.25 UNK, UNK
  2. SENSIPAR [Suspect]
     Active Substance: CINACALCET HYDROCHLORIDE
     Indication: PRODUCT USED FOR UNKNOWN INDICATION
     Dosage: 30 MG, QD
     Route: 048

REACTIONS (2)
  - Blood calcium decreased [Unknown]
  - Blood parathyroid hormone increased [Unknown]
